FAERS Safety Report 6239681-9 (Version None)
Quarter: 2009Q2

REPORT INFORMATION
  Report Type: 
  Country: None (occurrence: None)
  Receive Date: 20090619
  Receipt Date: 20090617
  Transmission Date: 20091009
  Serious: Yes (Congenital Anomaly, Other)
  Sender: FDA-Public Use
  Company Number: 2007SP019852

PATIENT
  Age: 1 Month
  Sex: Male
  Weight: 4.21 kg

DRUGS (2)
  1. PEG-INTRON [Suspect]
     Indication: HEPATITIS C
  2. REBETOL [Suspect]
     Indication: HEPATITIS C

REACTIONS (9)
  - CARDIAC MURMUR [None]
  - CYANOSIS NEONATAL [None]
  - DYSPHAGIA [None]
  - FEEDING DISORDER NEONATAL [None]
  - HYPOREFLEXIA [None]
  - INFANTILE SPASMS [None]
  - PATERNAL DRUGS AFFECTING FOETUS [None]
  - PSYCHOMOTOR SKILLS IMPAIRED [None]
  - TRISOMY 21 [None]
